FAERS Safety Report 19874842 (Version 4)
Quarter: 2024Q1

REPORT INFORMATION
  Report Type: Spontaneous
  Country: US (occurrence: US)
  Receive Date: 20210923
  Receipt Date: 20240209
  Transmission Date: 20240410
  Serious: Yes (Other)
  Sender: FDA-Public Use
  Company Number: US-PFIZER INC-2021600600

PATIENT
  Age: 59 Year
  Sex: Female

DRUGS (6)
  1. XELJANZ XR [Suspect]
     Active Substance: TOFACITINIB CITRATE
     Dosage: 11 MG, DAILY
     Route: 048
  2. XELJANZ XR [Suspect]
     Active Substance: TOFACITINIB CITRATE
     Dosage: 11 MG, 1X/DAY
     Route: 048
  3. ATENOLOL [Concomitant]
     Active Substance: ATENOLOL
  4. IBUPROFEN [Concomitant]
     Active Substance: IBUPROFEN
  5. VENLAFAXINE HCL [Concomitant]
     Active Substance: VENLAFAXINE HYDROCHLORIDE
  6. VITAMIN D2 [Concomitant]
     Active Substance: ERGOCALCIFEROL

REACTIONS (6)
  - Diabetes mellitus [Unknown]
  - Product prescribing error [Unknown]
  - Peripheral swelling [Unknown]
  - Illness [Unknown]
  - Hypokinesia [Unknown]
  - Mobility decreased [Unknown]
